FAERS Safety Report 15847803 (Version 2)
Quarter: 2019Q3

REPORT INFORMATION
  Report Type: Report from Study
  Country: US (occurrence: US)
  Receive Date: 20190121
  Receipt Date: 20190821
  Transmission Date: 20191004
  Serious: Yes (Hospitalization)
  Sender: FDA-Public Use
  Company Number: PHEH2019US002394

PATIENT
  Sex: Male

DRUGS (1)
  1. ENTRESTO [Suspect]
     Active Substance: SACUBITRIL\VALSARTAN
     Indication: PRODUCT USED FOR UNKNOWN INDICATION
     Route: 048

REACTIONS (9)
  - Dizziness [Unknown]
  - Cardiac failure congestive [Unknown]
  - Weight increased [Unknown]
  - Asthenia [Unknown]
  - Dyspnoea [Unknown]
  - Chronic obstructive pulmonary disease [Unknown]
  - Gait disturbance [Unknown]
  - Anxiety [Unknown]
  - Hypoacusis [Unknown]
